FAERS Safety Report 5742806-2 (Version None)
Quarter: 2008Q2

REPORT INFORMATION
  Report Type: 
  Country: None (occurrence: None)
  Receive Date: 20080519
  Receipt Date: 20080508
  Transmission Date: 20081010
  Serious: Yes (Death, Life-Threatening)
  Sender: FDA-Public Use
  Company Number: US-MERCK-0805USA01902

PATIENT
  Age: 56 Year
  Sex: Male

DRUGS (7)
  1. ISENTRESS [Suspect]
     Route: 048
     Dates: start: 20080101
  2. PRAVASTATIN SANDOZ [Concomitant]
     Route: 065
  3. KALETRA [Concomitant]
     Route: 065
  4. TRIZIVIR [Concomitant]
     Route: 065
  5. BENICAR [Concomitant]
     Route: 065
  6. ATIVAN [Concomitant]
     Route: 065
  7. FLOMAX [Concomitant]
     Route: 065

REACTIONS (2)
  - BLOOD CREATININE INCREASED [None]
  - RENAL FAILURE [None]
